FAERS Safety Report 11592563 (Version 1)
Quarter: 2015Q4

REPORT INFORMATION
  Report Type: Spontaneous
  Country: US (occurrence: US)
  Receive Date: 20151005
  Receipt Date: 20151005
  Transmission Date: 20160304
  Serious: No
  Sender: FDA-Public Use
  Company Number: US-ENDO PHARMACEUTICALS INC.-2015-000143

PATIENT
  Age: 67 Year
  Sex: Male

DRUGS (1)
  1. BACLOFEN TABLETS 10MG [Suspect]
     Active Substance: BACLOFEN
     Indication: MUSCULOSKELETAL STIFFNESS
     Route: 048
     Dates: start: 20150305, end: 201503

REACTIONS (1)
  - Drug ineffective [Not Recovered/Not Resolved]

NARRATIVE: CASE EVENT DATE: 201503
